FAERS Safety Report 11549962 (Version 3)
Quarter: 2016Q2

REPORT INFORMATION
  Report Type: Spontaneous
  Country: US (occurrence: US)
  Receive Date: 20150924
  Receipt Date: 20160510
  Transmission Date: 20160815
  Serious: Yes (Hospitalization, Other)
  Sender: FDA-Public Use
  Company Number: US-MDT-ADR-2015-01845

PATIENT
  Age: 58 Year
  Sex: Male

DRUGS (26)
  1. LIORESAL [Suspect]
     Active Substance: BACLOFEN
     Dosage: 814.8 MCG/DAY
     Route: 037
  2. BACLOFEN. [Suspect]
     Active Substance: BACLOFEN
     Dosage: 494.9 MCG/DAY
     Route: 037
     Dates: start: 20120525
  3. BACLOFEN. [Suspect]
     Active Substance: BACLOFEN
     Dosage: 569.4 MCG/DAY
     Route: 037
     Dates: start: 20120817
  4. BACLOFEN. [Suspect]
     Active Substance: BACLOFEN
     Dosage: 663 MCG/DAY
     Route: 037
     Dates: start: 20140117
  5. LIORESAL [Suspect]
     Active Substance: BACLOFEN
     Dosage: 34.8 MCQ/HOUR AND 23 MCQ/HOUR
     Route: 037
     Dates: start: 20150610
  6. LIORESAL [Suspect]
     Active Substance: BACLOFEN
     Dosage: 663 MCG/DAY
     Route: 037
     Dates: start: 20140502
  7. LIORESAL [Suspect]
     Active Substance: BACLOFEN
     Dosage: 34.8 MCQ/HOUR AND 23 MCQ/HOUR
     Route: 037
     Dates: start: 20141121
  8. OXCARBAZEPINE. [Suspect]
     Active Substance: OXCARBAZEPINE
     Dosage: 600 MG 3 TIMES PER DAY
     Route: 048
  9. BACLOFEN. [Suspect]
     Active Substance: BACLOFEN
     Dosage: 611.8 MCG/DAY
     Route: 037
     Dates: start: 20130607
  10. LIORESAL [Suspect]
     Active Substance: BACLOFEN
     Dosage: 34.8 MCQ/HOUR AND 23 MCQ/HOUR
     Route: 037
     Dates: start: 20150227
  11. LIORESAL [Suspect]
     Active Substance: BACLOFEN
     Dosage: 887.4 MCG/DAY
     Route: 037
     Dates: start: 20160405
  12. BACLOFEN. [Suspect]
     Active Substance: BACLOFEN
     Dosage: 410.8 MCG/DAY
     Route: 037
     Dates: start: 20110928
  13. BACLOFEN. [Suspect]
     Active Substance: BACLOFEN
     Dosage: 410.8 MCG/DAY
     Route: 037
     Dates: start: 20111208
  14. BACLOFEN. [Suspect]
     Active Substance: BACLOFEN
     Dosage: 10 MG/3 TIMES PER DAY
     Route: 048
  15. BACLOFEN. [Suspect]
     Active Substance: BACLOFEN
     Dosage: 543.2 MCG/DAY
     Route: 037
     Dates: start: 20120627
  16. LIORESAL [Suspect]
     Active Substance: BACLOFEN
     Dosage: 886.62 MCG/DAY
     Route: 037
  17. LIORESAL [Suspect]
     Active Substance: BACLOFEN
     Dosage: 684.5 MCG/DAY
     Route: 037
     Dates: start: 20140813
  18. BACLOFEN. [Suspect]
     Active Substance: BACLOFEN
     Dosage: 627 MCG/DAY
     Route: 037
     Dates: start: 20130719
  19. LIORESAL [Suspect]
     Active Substance: BACLOFEN
     Dosage: 740.7 MCG/DAY
     Route: 037
     Dates: start: 20150819
  20. BACLOFEN. [Suspect]
     Active Substance: BACLOFEN
     Dosage: 450 MCG/DAY
     Route: 037
     Dates: start: 20120504
  21. LIORESAL [Suspect]
     Active Substance: BACLOFEN
     Dosage: 740.7 MCG/DAY
     Route: 037
  22. LIORESAL [Suspect]
     Active Substance: BACLOFEN
     Dosage: 844.4 MCG/DAY
     Route: 037
  23. BACLOFEN. [Suspect]
     Active Substance: BACLOFEN
     Dosage: 596.7 MCG/DAY
     Route: 037
     Dates: start: 20121206
  24. BACLOFEN. [Suspect]
     Active Substance: BACLOFEN
     Dosage: 644 MCG/DAY
     Route: 037
     Dates: start: 20130930
  25. LIORESAL [Suspect]
     Active Substance: BACLOFEN
     Dosage: 814.08 MCG/DAY
     Route: 037
     Dates: start: 20150918
  26. LIORESAL [Suspect]
     Active Substance: BACLOFEN
     Dosage: 844.4 MCG/DAY
     Route: 037
     Dates: start: 20151211

REACTIONS (4)
  - Asthenia [Unknown]
  - Muscle spasms [Unknown]
  - Musculoskeletal stiffness [Unknown]
  - Muscle spasticity [Unknown]

NARRATIVE: CASE EVENT DATE: 20111216
